FAERS Safety Report 11506779 (Version 2)
Quarter: 2015Q3

REPORT INFORMATION
  Report Type: Report from Study
  Country: ES (occurrence: ES)
  Receive Date: 20150915
  Receipt Date: 20150925
  Transmission Date: 20151125
  Serious: Yes (Hospitalization)
  Sender: FDA-Public Use
  Company Number: ES-ROCHE-1631521

PATIENT
  Age: 60 Year
  Sex: Female
  Weight: 74.2 kg

DRUGS (16)
  1. 5-FLUOROURACIL [Suspect]
     Active Substance: FLUOROURACIL
     Indication: BREAST CANCER
     Dosage: AS PER PROTOCOL: 500 MG/M2 GIVEN EVERY 3 WEEKS FOR 12 WEEKS (CYCLES 1-4)
     Route: 042
     Dates: start: 20150423
  2. CYCLOPHOSPHAMIDE. [Suspect]
     Active Substance: CYCLOPHOSPHAMIDE
     Indication: BREAST CANCER
     Dosage: AS PER PROTOCOL: 600 MG/M2 GIVEN EVERY 3 WEEKS FOR 12 WEEKS (CYCLES 1-4)
     Route: 042
     Dates: start: 20150413
  3. CLORAZEPATE DIPOTASSIUM. [Concomitant]
     Active Substance: CLORAZEPATE DIPOTASSIUM
     Route: 048
  4. LITHIUM CARBONATE. [Concomitant]
     Active Substance: LITHIUM CARBONATE
     Indication: BIPOLAR DISORDER
     Route: 048
     Dates: end: 20150915
  5. PANTOPRAZOLE [Concomitant]
     Active Substance: PANTOPRAZOLE SODIUM
     Indication: PROPHYLAXIS
     Route: 042
     Dates: start: 20150904
  6. CITALOPRAM [Concomitant]
     Active Substance: CITALOPRAM HYDROBROMIDE
     Indication: BIPOLAR DISORDER
     Route: 048
  7. ARIPIPRAZOLE. [Concomitant]
     Active Substance: ARIPIPRAZOLE
     Indication: BIPOLAR DISORDER
     Route: 048
     Dates: start: 20150507
  8. DOCETAXEL. [Suspect]
     Active Substance: DOCETAXEL
     Indication: BREAST CANCER
     Dosage: AS PER PROTOCOL: 100 MG/M2 (75 MG/M2 FIRST DOSE) GIVEN EVERY 3 WEEKS FOR 12 WEEKS (CYLES 5-8)
     Route: 042
     Dates: start: 20150715
  9. DOCETAXEL. [Suspect]
     Active Substance: DOCETAXEL
     Dosage: DATE OF MOST RECENT DOSE OF DOCETAXEL PRIOR TO SAE: 26/AUG/2015?AS PER PROTOCOL: 100 MG/M2 (75 MG/M2
     Route: 042
     Dates: start: 20150805
  10. TRASTUZUMAB [Suspect]
     Active Substance: TRASTUZUMAB
     Indication: BREAST CANCER
     Dosage: LOADING DOSE
     Route: 042
     Dates: start: 20150715
  11. TRASTUZUMAB [Suspect]
     Active Substance: TRASTUZUMAB
     Dosage: DATE OF MOST RECENT DOSE OF TRASTUZUMAB: 26/AUG/2015
     Route: 042
     Dates: start: 20150805
  12. EPIRUBICIN [Suspect]
     Active Substance: EPIRUBICIN
     Indication: BREAST CANCER
     Dosage: AS PER PROTOCO: 100 MG/M2 GIVEN EVERY 3 WEEKS FOR 12 WEEKS (CYCLES 1-4)
     Route: 042
     Dates: start: 20150423
  13. OMEPRAZOLE. [Concomitant]
     Active Substance: OMEPRAZOLE
     Indication: PROPHYLAXIS
     Route: 048
  14. QUETIAPINE [Concomitant]
     Active Substance: QUETIAPINE
     Indication: BIPOLAR DISORDER
     Route: 048
     Dates: start: 20150730
  15. CLORAZEPATE DIPOTASSIUM. [Concomitant]
     Active Substance: CLORAZEPATE DIPOTASSIUM
     Indication: BIPOLAR DISORDER
     Route: 048
  16. PERTUZUMAB [Suspect]
     Active Substance: PERTUZUMAB
     Indication: BREAST CANCER
     Route: 042
     Dates: start: 20150715

REACTIONS (1)
  - Pseudomonal bacteraemia [Recovering/Resolving]

NARRATIVE: CASE EVENT DATE: 20150904
